FAERS Safety Report 8630020 (Version 3)
Quarter: 2013Q3

REPORT INFORMATION
  Report Type: Spontaneous
  Country: US (occurrence: None)
  Receive Date: 20120604
  Receipt Date: 20130822
  Transmission Date: 20140515
  Serious: No
  Sender: FDA-Public Use
  Company Number: ADR-UNK-057

PATIENT
  Age: 27 Year
  Sex: Female

DRUGS (6)
  1. EPIVIR HBV [Suspect]
     Indication: ACQUIRED IMMUNODEFICIENCY SYNDROME
     Dosage: 1 COURSE
     Dates: start: 20111222
  2. LOPINAVIR + RITONAVIR (KALETRA?,ALUVIA?  LPV/R) [Concomitant]
  3. ZIDOVUDINE (RETROVIR  ZDV) [Concomitant]
  4. TENOFOVIR DISOPROXIL FUMARATE + EMTRICITABINE(TRUVADA?TVD) [Concomitant]
  5. ATAZANAVIR SULFATE (REYATAZ?,ATV) [Concomitant]
  6. RITONAVIR (NORVIR?,RTV) [Concomitant]

REACTIONS (4)
  - Anaemia [None]
  - Aspartate aminotransferase increased [None]
  - Alanine aminotransferase increased [None]
  - Maternal exposure during pregnancy [None]
